FAERS Safety Report 9543380 (Version 2)
Quarter: 2014Q1

REPORT INFORMATION
  Report Type: Spontaneous
  Country: US (occurrence: None)
  Receive Date: 20130524
  Receipt Date: 20130724
  Transmission Date: 20141002
  Serious: Yes (Hospitalization)
  Sender: FDA-Public Use
  Company Number: PHEH2013US004278

PATIENT
  Sex: Male

DRUGS (3)
  1. GILENYA [Suspect]
     Indication: MULTIPLE SCLEROSIS
     Route: 048
     Dates: start: 20130219
  2. VITMAIN D (ERGOCALCIFEROL) [Concomitant]
  3. NEURONTIN (GABBAPENTIN) [Concomitant]

REACTIONS (1)
  - Heart rate decreased [None]
